FAERS Safety Report 5812885-2 (Version None)
Quarter: 2008Q3

REPORT INFORMATION
  Report Type: 
  Country: None (occurrence: None)
  Receive Date: 20080717
  Receipt Date: 20080708
  Transmission Date: 20090109
  Serious: Yes (Life-Threatening, Hospitalization)
  Sender: FDA-Public Use
  Company Number: NSADSS2002036531

PATIENT
  Age: 35 Year
  Sex: Female
  Weight: 83.01 kg

DRUGS (6)
  1. REMICADE [Suspect]
     Indication: RHEUMATOID ARTHRITIS
     Route: 041
     Dates: start: 20020712
  2. REMICADE [Suspect]
     Indication: CROHN'S DISEASE
     Route: 041
     Dates: start: 20020712
  3. METHOTREXATE [Concomitant]
  4. PREDNISONE TAB [Concomitant]
  5. SULINDAC [Concomitant]
  6. FOLIC ACID [Concomitant]

REACTIONS (1)
  - TUBERCULOSIS [None]
